FAERS Safety Report 6470010-1 (Version None)
Quarter: 2009Q4

REPORT INFORMATION
  Report Type: 
  Country: None (occurrence: None)
  Receive Date: 20091203
  Receipt Date: 20071005
  Transmission Date: 20100525
  Serious: Yes (Hospitalization)
  Sender: FDA-Public Use
  Company Number: US-ELI_LILLY_AND_COMPANY-US200710002611

PATIENT
  Sex: Female

DRUGS (13)
  1. BYETTA [Suspect]
     Indication: TYPE 2 DIABETES MELLITUS
     Dosage: 5 UG, UNKNOWN
     Route: 058
  2. BYETTA [Suspect]
     Dosage: 10 UG, 2/D
     Route: 058
     Dates: start: 20060204
  3. LANTUS [Concomitant]
     Indication: DIABETES MELLITUS
     Dosage: 100 U, EACH EVENING
  4. ULTRAM [Concomitant]
     Indication: ARTHRITIS
     Dosage: UNK, 4/D
  5. TYLENOL (CAPLET) [Concomitant]
     Indication: ARTHRITIS
     Dosage: UNK, 4/D
  6. GLIPIZIDE [Concomitant]
     Indication: DIABETES MELLITUS
     Dosage: 5 MG, 2/D
  7. COREG [Concomitant]
     Indication: CARDIAC DISORDER
     Dosage: 25 MG, 2/D
  8. OMEPRAZOLE [Concomitant]
     Indication: ABDOMINAL DISCOMFORT
     Dosage: UNK, UNKNOWN
  9. NORVASC [Concomitant]
     Indication: CARDIAC DISORDER
     Dosage: UNK, DAILY (1/D)
  10. ISOSORBIDE [Concomitant]
     Indication: CARDIAC DISORDER
     Dosage: UNK, EACH MORNING
  11. LISINOPRIL [Concomitant]
     Indication: CARDIAC DISORDER
     Dosage: UNK, DAILY (1/D)
  12. FUROSEMIDE [Concomitant]
     Indication: CARDIAC DISORDER
     Dosage: 60 MG, 2/D
  13. FEXOFENADINE [Concomitant]
     Indication: HYPERSENSITIVITY
     Dosage: UNK, 2/D

REACTIONS (5)
  - BLOOD GLUCOSE DECREASED [None]
  - FEELING ABNORMAL [None]
  - FLUSHING [None]
  - PALLOR [None]
  - PARAESTHESIA ORAL [None]
